FAERS Safety Report 20777735 (Version 4)
Quarter: 2022Q2

REPORT INFORMATION
  Report Type: Spontaneous
  Country: JP (occurrence: None)
  Receive Date: 20220503
  Receipt Date: 20220623
  Transmission Date: 20220721
  Serious: Yes (Death, Other)
  Sender: FDA-Public Use
  Company Number: 2022A170332

PATIENT
  Age: 88 Year
  Sex: Female

DRUGS (10)
  1. DAPAGLIFLOZIN [Suspect]
     Active Substance: DAPAGLIFLOZIN
     Indication: Type 2 diabetes mellitus
     Route: 048
     Dates: start: 20220203, end: 20220418
  2. IMIDAPRIL [Concomitant]
     Active Substance: IMIDAPRIL
     Route: 048
  3. NORVASC [Concomitant]
     Active Substance: AMLODIPINE BESYLATE
     Route: 048
  4. ROCALTROL [Concomitant]
     Active Substance: CALCITRIOL
     Route: 048
  5. COLESTILAN CHLORIDE [Concomitant]
     Active Substance: COLESTILAN CHLORIDE
     Route: 048
  6. SINLESTAL [Concomitant]
     Route: 048
  7. BERBERINE\GERANIUM [Concomitant]
     Active Substance: BERBERINE\GERANIUM
     Route: 048
     Dates: start: 20220411, end: 20220414
  8. ORACEF [Concomitant]
     Route: 060
     Dates: start: 20220411, end: 20220414
  9. DORIPENEM MONOHYDRATE [Concomitant]
     Active Substance: DORIPENEM MONOHYDRATE
     Route: 041
     Dates: start: 20220411, end: 20220416
  10. SITAFLOXACIN [Concomitant]
     Active Substance: SITAFLOXACIN
     Route: 048
     Dates: start: 20220415, end: 20220418

REACTIONS (2)
  - Sepsis [Fatal]
  - Gastroenteritis [Recovering/Resolving]

NARRATIVE: CASE EVENT DATE: 20220401
